FAERS Safety Report 9911680 (Version 2)
Quarter: 2014Q4

REPORT INFORMATION
  Report Type: Spontaneous
  Country: US (occurrence: US)
  Receive Date: 20140219
  Receipt Date: 20141107
  Transmission Date: 20150529
  Serious: Yes (Other)
  Sender: FDA-Public Use
  Company Number: US-TEVA-463781USA

PATIENT
  Age: 23 Year
  Sex: Female
  Weight: 83.99 kg

DRUGS (1)
  1. PLAN B ONE-STEP [Suspect]
     Active Substance: LEVONORGESTREL
     Indication: POST COITAL CONTRACEPTION
     Dosage: 1.5 MILLIGRAM DAILY;
     Route: 048
     Dates: start: 20140114, end: 20140114

REACTIONS (2)
  - Pregnancy after post coital contraception [Recovered/Resolved]
  - Normal newborn [Recovered/Resolved]

NARRATIVE: CASE EVENT DATE: 20140203
